FAERS Safety Report 16963644 (Version 1)
Quarter: 2019Q4

REPORT INFORMATION
  Report Type: Spontaneous
  Country: US (occurrence: US)
  Receive Date: 20191025
  Receipt Date: 20191025
  Transmission Date: 20200122
  Serious: Yes (Other)
  Sender: FDA-Public Use
  Company Number: US-TEVA-2019-US-1129231

PATIENT

DRUGS (1)
  1. DIAZOXIDE [Suspect]
     Active Substance: DIAZOXIDE
     Route: 065

REACTIONS (2)
  - Intracranial pressure increased [Unknown]
  - CNS germinoma [Unknown]
